FAERS Safety Report 26193600 (Version 1)
Quarter: 2025Q4

REPORT INFORMATION
  Report Type: Report from Study
  Country: US (occurrence: None)
  Receive Date: 20251224
  Receipt Date: 20251224
  Transmission Date: 20260119
  Serious: No
  Sender: IONIS PHARMACEUTICALS
  Company Number: US-IONIS PHARMACEUTICALS, INC.-2025ION000204

PATIENT
  Age: 56 Year

DRUGS (7)
  1. TRYNGOLZA [Suspect]
     Active Substance: OLEZARSEN SODIUM
     Indication: Familial hypertriglyceridaemia
     Dosage: 80 MILLIGRAM, Q1M
  2. LOKELMA [Concomitant]
     Active Substance: SODIUM ZIRCONIUM CYCLOSILICATE
     Indication: Product used for unknown indication
     Dosage: UNK
  3. IRBESARTAN [Concomitant]
     Active Substance: IRBESARTAN
     Indication: Product used for unknown indication
     Dosage: UNK
  4. ZETIA [Concomitant]
     Active Substance: EZETIMIBE
     Indication: Product used for unknown indication
     Dosage: UNK
  5. CALCITRIOL [Concomitant]
     Active Substance: CALCITRIOL
     Indication: Product used for unknown indication
     Dosage: UNK
  6. PHOSLO [Concomitant]
     Active Substance: CALCIUM ACETATE
     Indication: Product used for unknown indication
     Dosage: UNK
  7. TORSEMIDE [Concomitant]
     Active Substance: TORSEMIDE
     Indication: Product used for unknown indication
     Dosage: UNK

REACTIONS (3)
  - Rash pruritic [Not Recovered/Not Resolved]
  - Rash vesicular [Not Recovered/Not Resolved]
  - Nasopharyngitis [Recovered/Resolved]
